FAERS Safety Report 7261171-5 (Version None)
Quarter: 2011Q1

REPORT INFORMATION
  Report Type: 
  Country: None (occurrence: None)
  Receive Date: 20110130
  Receipt Date: 20100917
  Transmission Date: 20110831
  Serious: No
  Sender: FDA-Public Use
  Company Number: US-ABBOTT-10P-163-0671984-00

PATIENT
  Age: 18 Year
  Sex: Female

DRUGS (3)
  1. HUMIRA [Suspect]
     Indication: PSORIASIS
     Dates: start: 20100914
  2. HUMIRA [Suspect]
  3. HUMIRA [Suspect]
     Dates: start: 20100921

REACTIONS (2)
  - HEADACHE [None]
  - INJECTION SITE PAIN [None]
